FAERS Safety Report 9006884 (Version 3)
Quarter: 2013Q1

REPORT INFORMATION
  Report Type: Spontaneous
  Country: US (occurrence: US)
  Receive Date: 20130110
  Receipt Date: 20130215
  Transmission Date: 20140127
  Serious: Yes (Hospitalization)
  Sender: FDA-Public Use
  Company Number: US-JNJFOC-20130100851

PATIENT
  Age: 68 Year
  Sex: Male

DRUGS (13)
  1. NUCYNTA [Suspect]
     Indication: PAIN
     Dosage: EVERY 4 HOURS
     Route: 048
  2. PREDNISONE [Suspect]
     Indication: PROSTATE CANCER
     Route: 048
  3. ASPIRIN [Suspect]
     Indication: PRODUCT USED FOR UNKNOWN INDICATION
     Route: 048
  4. LIPITOR [Suspect]
     Indication: PRODUCT USED FOR UNKNOWN INDICATION
     Route: 048
  5. BENICAR [Suspect]
     Indication: PRODUCT USED FOR UNKNOWN INDICATION
     Route: 048
  6. BYSTOLIC [Suspect]
     Indication: PRODUCT USED FOR UNKNOWN INDICATION
     Route: 048
  7. GLYBURIDE [Suspect]
     Indication: PRODUCT USED FOR UNKNOWN INDICATION
     Route: 048
  8. IMDUR [Suspect]
     Indication: PRODUCT USED FOR UNKNOWN INDICATION
     Route: 048
  9. METHADONE [Suspect]
     Indication: PRODUCT USED FOR UNKNOWN INDICATION
     Route: 048
  10. NITROGLYCERIN [Suspect]
     Indication: PRODUCT USED FOR UNKNOWN INDICATION
     Dosage: INTERVAL: AS NECESSARY
     Route: 060
  11. SUTENT [Suspect]
     Indication: PROSTATE CANCER
     Route: 048
     Dates: start: 2012
  12. SUTENT [Suspect]
     Indication: PROSTATE CANCER
     Route: 048
     Dates: start: 20120402, end: 20120422
  13. ABIRATERONE ACETATE [Concomitant]
     Indication: PROSTATE CANCER
     Route: 048
     Dates: start: 20110603

REACTIONS (5)
  - Muscular weakness [Recovered/Resolved]
  - Dyspnoea [Unknown]
  - Chest pain [Unknown]
  - Asthenia [Unknown]
  - Mental status changes [Unknown]
